FAERS Safety Report 17897275 (Version 3)
Quarter: 2020Q3

REPORT INFORMATION
  Report Type: Spontaneous
  Country: DE (occurrence: DE)
  Receive Date: 20200615
  Receipt Date: 20200806
  Transmission Date: 20201103
  Serious: Yes (Other)
  Sender: FDA-Public Use
  Company Number: DE-MYLANLABS-2020M1055011

PATIENT
  Sex: Male
  Weight: 105 kg

DRUGS (24)
  1. VALSARTAN DURA 320 MG FILMTABLETTEN [Suspect]
     Active Substance: VALSARTAN
     Indication: PRODUCT USED FOR UNKNOWN INDICATION
     Dosage: 320 MILLIGRAM, QD
     Dates: start: 2013
  2. CANDESARTAN 1 A PHARMA [Concomitant]
     Active Substance: CANDESARTAN
     Dosage: UNK, QD, 1?0?0
     Route: 048
  3. METOHEXAL SUCC [Concomitant]
     Active Substance: METOPROLOL SUCCINATE
     Dosage: 1?0?0
     Route: 048
  4. HCT BETA [Concomitant]
     Active Substance: HYDROCHLOROTHIAZIDE
     Dosage: UNK, QD, 1?0?0
     Route: 048
  5. METOPROLOLSUCCINAT AL [Concomitant]
     Active Substance: METOPROLOL SUCCINATE
     Dosage: UNK, QD, 1?0?0
     Route: 048
  6. VALSARTAN. [Suspect]
     Active Substance: VALSARTAN
     Indication: PRODUCT USED FOR UNKNOWN INDICATION
     Dosage: 320 MILLIGRAM, QD (TAD PHARMA)
     Route: 048
     Dates: start: 20170714, end: 20190312
  7. AMLODIPIN                          /00972401/ [Concomitant]
     Active Substance: AMLODIPINE BESYLATE
     Dosage: FAIR?MED HEALTHCARE, 1?0?0
     Route: 048
  8. NOVAMINSULFON LICHTENSTEIN [Concomitant]
     Active Substance: METAMIZOLE SODIUM
     Dosage: AS NEEDED
     Route: 048
  9. VALSARTAN. [Suspect]
     Active Substance: VALSARTAN
     Indication: PRODUCT USED FOR UNKNOWN INDICATION
     Dosage: 320 MILLIGRAM, QD (ABZ), 1?0?0 ONCE
     Route: 048
     Dates: start: 20150610, end: 20170421
  10. IBUFLAM                            /00109201/ [Concomitant]
     Active Substance: IBUPROFEN
     Dosage: UNK, PRN, (LICHTENST), AS NEEDED
     Route: 048
  11. METOPROLOLSUCCINAT DURA [Concomitant]
     Active Substance: METOPROLOL SUCCINATE
     Dosage: UNK, QD, 1?0?0
     Route: 048
  12. VALSARTAN. [Suspect]
     Active Substance: VALSARTAN
     Dosage: 320MG/25MG, QD (TAD PHARMA), ONCE DAILY
     Dates: start: 20181105
  13. LEVOFLOXACIN 1 A PHARMA [Concomitant]
     Active Substance: LEVOFLOXACIN
     Dosage: UNK
     Route: 048
  14. CIPROFLOXACIN AL [Concomitant]
     Active Substance: CIPROFLOXACIN
     Dosage: UNK
     Route: 048
  15. HCT HEXAL [Concomitant]
     Active Substance: HYDROCHLOROTHIAZIDE
     Dosage: UNK, QD, 1?0?0
     Route: 048
  16. AMOXI 1A PHARMA [Concomitant]
     Active Substance: AMOXICILLIN
     Dosage: UNK, (1000)
     Route: 048
  17. VALSARTAN DURA 320 MG FILMTABLETTEN [Suspect]
     Active Substance: VALSARTAN
     Dosage: 320 MILLIGRAM, QD, 1?0?0, ONCE
     Route: 048
     Dates: start: 20150921, end: 20160413
  18. HCT 1 A PHARMA [Concomitant]
     Active Substance: HYDROCHLOROTHIAZIDE
     Dosage: UNK, QD, 1?0?0
     Route: 048
  19. VALSARTAN. [Suspect]
     Active Substance: VALSARTAN
     Indication: PRODUCT USED FOR UNKNOWN INDICATION
     Dosage: 320MG/25MG, QD (TAD PHARMA), ONCE DAILY
     Dates: start: 20180713
  20. VALSARTAN. [Suspect]
     Active Substance: VALSARTAN
     Dosage: 320MG/25MG, QD (TAD PHARMA), ONCE DAILY
     Dates: start: 20181011
  21. DUODART [Concomitant]
     Active Substance: DUTASTERIDE\TAMSULOSIN
     Dosage: UNK
     Route: 048
  22. VALSARTAN DURA 320 MG FILMTABLETTEN [Suspect]
     Active Substance: VALSARTAN
     Dosage: 320 MILLIGRAM, QD, 1?0?0, ONCE
     Route: 048
     Dates: start: 20150327
  23. VALSARTAN. [Suspect]
     Active Substance: VALSARTAN
     Dosage: 320MG/25MG, QD (TAD PHARMA), ONCE DAILY
     Dates: start: 20190312
  24. HCT DEXCEL [Concomitant]
     Active Substance: HYDROCHLOROTHIAZIDE
     Dosage: UNK, QD, 1?0?0
     Route: 048

REACTIONS (7)
  - Hypertension [Unknown]
  - Disturbance in attention [Not Recovered/Not Resolved]
  - Impaired quality of life [Not Recovered/Not Resolved]
  - Benign prostatic hyperplasia [Unknown]
  - Sleep disorder [Not Recovered/Not Resolved]
  - Fear of disease [Not Recovered/Not Resolved]
  - Mental impairment [Not Recovered/Not Resolved]

NARRATIVE: CASE EVENT DATE: 201901
